FAERS Safety Report 8710653 (Version 13)
Quarter: 2014Q1

REPORT INFORMATION
  Report Type: Report from Study
  Country: US (occurrence: US)
  Receive Date: 20120807
  Receipt Date: 20140203
  Transmission Date: 20141002
  Serious: Yes (Hospitalization, Other)
  Sender: FDA-Public Use
  Company Number: US-JNJFOC-20120801542

PATIENT
  Age: 45 Year
  Sex: Female
  Weight: 131.54 kg

DRUGS (8)
  1. REMICADE [Suspect]
     Indication: PSORIASIS
     Route: 042
     Dates: end: 20110429
  2. REMICADE [Suspect]
     Indication: PSORIASIS
     Route: 042
     Dates: start: 20071130
  3. REMICADE [Suspect]
     Indication: PSORIASIS
     Route: 042
     Dates: start: 20100129
  4. USTEKINUMAB [Suspect]
     Indication: PSORIASIS
     Dosage: TOTAL OF 3 INFUSIONS RECEIVED
     Route: 058
     Dates: start: 20110615, end: 20111031
  5. HUMIRA [Suspect]
     Indication: PRODUCT USED FOR UNKNOWN INDICATION
     Route: 065
     Dates: start: 20120529, end: 201206
  6. CYCLOSPORINE [Concomitant]
     Dosage: PEAK DOSE
     Route: 048
     Dates: start: 20100129, end: 20100503
  7. CYCLOSPORINE [Concomitant]
     Dosage: PEAK DOSE
     Route: 048
     Dates: start: 20111031, end: 201206
  8. CYCLOSPORINE [Concomitant]
     Dosage: PEAK DOSE
     Route: 048
     Dates: start: 20090403, end: 20090615

REACTIONS (1)
  - Follicular thyroid cancer [Recovered/Resolved]
